FAERS Safety Report 7699465-1 (Version None)
Quarter: 2011Q3

REPORT INFORMATION
  Report Type: 
  Country: None (occurrence: None)
  Receive Date: 20110820
  Receipt Date: 20101213
  Transmission Date: 20111222
  Serious: No
  Sender: FDA-Public Use
  Company Number: US-ALLERGAN-1016157US

PATIENT
  Age: 81 Year
  Sex: Male

DRUGS (1)
  1. SANCTURA XR [Suspect]
     Indication: PRODUCT USED FOR UNKNOWN INDICATION
     Dosage: 60 MG, QAM
     Dates: start: 20101122

REACTIONS (2)
  - JOINT STIFFNESS [None]
  - GAIT DISTURBANCE [None]
